FAERS Safety Report 7398891-8 (Version None)
Quarter: 2011Q2

REPORT INFORMATION
  Report Type: 
  Country: None (occurrence: None)
  Receive Date: 20110407
  Receipt Date: 20110329
  Transmission Date: 20111010
  Serious: Yes (Hospitalization)
  Sender: FDA-Public Use
  Company Number: US-ASTELLAS-2011US001276

PATIENT
  Age: 57 Year
  Sex: Male
  Weight: 85 kg

DRUGS (1)
  1. AMEVIVE [Suspect]
     Indication: RENAL TRANSPLANT
     Dosage: 15 MG, WEEKLY
     Route: 058
     Dates: start: 20101119, end: 20110210

REACTIONS (7)
  - ULTRASOUND SCAN ABNORMAL [None]
  - PNEUMONIA [None]
  - CELLULITIS [None]
  - PULMONARY CAVITATION [None]
  - KLEBSIELLA TEST POSITIVE [None]
  - X-RAY ABNORMAL [None]
  - ABSCESS [None]
